FAERS Safety Report 8824888 (Version 1)
Quarter: 2012Q4

REPORT INFORMATION
  Report Type: 
  Country: US (occurrence: US)
  Receive Date: 20121004
  Receipt Date: 20121004
  Transmission Date: 20130627
  Serious: No
  Sender: FDA-Public Use
  Company Number: US-009507513-1210USA001853

PATIENT
  Age: 73 Year
  Sex: Female

DRUGS (3)
  1. DESLORATADINE\PSEUDOEPHEDRINE SULFATE [Suspect]
     Indication: NASAL CONGESTION
     Dosage: UNK
     Route: 048
     Dates: start: 20120918
  2. KEFLEX [Concomitant]
  3. LORCET [Concomitant]

REACTIONS (1)
  - Palpitations [Unknown]
